FAERS Safety Report 26162449 (Version 1)
Quarter: 2025Q4

REPORT INFORMATION
  Report Type: Spontaneous
  Country: EU (occurrence: EU)
  Receive Date: 20251216
  Receipt Date: 20251216
  Transmission Date: 20260118
  Serious: Yes (Hospitalization)
  Sender: BAUSCH AND LOMB
  Company Number: None

PATIENT
  Age: 71 Year
  Sex: Male
  Weight: 55.4 kg

DRUGS (33)
  1. DEXAMETHASONE [Suspect]
     Active Substance: DEXAMETHASONE
     Indication: Product used for unknown indication
     Route: 065
  2. ACYCLOVIR [Concomitant]
     Active Substance: ACYCLOVIR
     Indication: Prophylaxis
     Dates: start: 20250915, end: 20251009
  3. NASONEX [Concomitant]
     Active Substance: MOMETASONE FUROATE
     Indication: Prophylaxis
     Dates: start: 20220502
  4. SERETIDE [Concomitant]
     Active Substance: FLUTICASONE PROPIONATE\SALMETEROL XINAFOATE
     Indication: Prophylaxis
     Dates: start: 20220502
  5. LORAZEPAM [Concomitant]
     Active Substance: LORAZEPAM
     Indication: Prophylaxis
     Dates: start: 20220606
  6. CYCLOPHOSPHAMIDE [Concomitant]
     Active Substance: CYCLOPHOSPHAMIDE
     Indication: Product used for unknown indication
     Dosage: 433 MG
     Dates: start: 20250727
  7. FLUDARABINE [Concomitant]
     Active Substance: FLUDARABINE PHOSPHATE
     Indication: Product used for unknown indication
     Dosage: 44 MG
     Dates: start: 20250727
  8. ERYTHROPOIETIN [Concomitant]
     Active Substance: ERYTHROPOIETIN
     Indication: Anaemia
     Dates: start: 20250821
  9. FILGRASTIM [Concomitant]
     Active Substance: FILGRASTIM
     Indication: Thrombocytopenia
     Dates: start: 20250821
  10. LEVETIRACETAM [Concomitant]
     Active Substance: LEVETIRACETAM
     Indication: Prophylaxis
     Dates: start: 20250828
  11. SULFAMETHOXAZOLE\TRIMETHOPRIM [Concomitant]
     Active Substance: SULFAMETHOXAZOLE\TRIMETHOPRIM
     Indication: Prophylaxis
     Dates: start: 20250828
  12. METHYLPREDNISOLONE [Concomitant]
     Active Substance: METHYLPREDNISOLONE
     Indication: Ileal stenosis
     Dates: start: 20250905
  13. OMEPRAZOLE [Concomitant]
     Active Substance: OMEPRAZOLE
     Indication: Gastritis prophylaxis
     Dates: start: 20250916
  14. ANIDULAFUNGIN [Concomitant]
     Active Substance: ANIDULAFUNGIN
     Indication: Prophylaxis
     Dates: start: 20250917, end: 20250917
  15. ANIDULAFUNGIN [Concomitant]
     Active Substance: ANIDULAFUNGIN
     Dates: start: 20250918, end: 20250918
  16. DIGOXIN [Concomitant]
     Active Substance: DIGOXIN
     Indication: Atrial fibrillation
     Dates: start: 20250917, end: 20250917
  17. DIGOXIN [Concomitant]
     Active Substance: DIGOXIN
     Dates: start: 20250918, end: 20250918
  18. FUROSEMIDE [Concomitant]
     Active Substance: FUROSEMIDE
     Indication: Prophylaxis
     Dates: start: 20250917, end: 20250919
  19. FUROSEMIDE [Concomitant]
     Active Substance: FUROSEMIDE
     Dates: start: 20250919, end: 20251008
  20. PREDNISONE [Concomitant]
     Active Substance: PREDNISONE
     Indication: Ileal stenosis
     Dates: start: 20250917, end: 20250919
  21. PREDNISONE [Concomitant]
     Active Substance: PREDNISONE
     Dates: start: 20250919, end: 20251008
  22. PREDNISONE [Concomitant]
     Active Substance: PREDNISONE
     Dates: start: 20250920, end: 20251008
  23. PREDNISONE [Concomitant]
     Active Substance: PREDNISONE
     Dates: start: 20251008
  24. ENOXAPARIN [Concomitant]
     Active Substance: ENOXAPARIN
     Indication: Prophylaxis
     Dates: start: 20250918
  25. HYDROCORTISONE [Concomitant]
     Active Substance: HYDROCORTISONE
     Indication: Prophylaxis
     Dates: start: 20250918, end: 20250919
  26. MAGNOGENE [MAGNESIUM BROMIDE;MAGNESIUM FLUORIDE;MAGNESIUM HYDROXIDE] [Concomitant]
     Indication: Prophylaxis
     Dates: start: 20250918, end: 20250919
  27. FLUCONAZOLE [Concomitant]
     Active Substance: FLUCONAZOLE
     Indication: Prophylaxis
     Dates: start: 20250919, end: 20251008
  28. MAGNESIUM [Concomitant]
     Active Substance: MAGNESIUM
     Indication: Prophylaxis
     Dates: start: 20250919, end: 20251008
  29. ACETAMINOPHEN [Concomitant]
     Active Substance: ACETAMINOPHEN
     Indication: Pain prophylaxis
     Dates: start: 20250919, end: 20251008
  30. ACETAMINOPHEN [Concomitant]
     Active Substance: ACETAMINOPHEN
     Dates: start: 20251008, end: 20251008
  31. TRAMADOL [Concomitant]
     Active Substance: TRAMADOL
     Indication: Pain prophylaxis
     Dates: start: 20250919, end: 20251008
  32. TRAMADOL HYDROCHLORIDE [Concomitant]
     Active Substance: TRAMADOL HYDROCHLORIDE
     Indication: Ileal stenosis
     Dates: start: 20250905
  33. BISOPROLOL [Concomitant]
     Active Substance: BISOPROLOL
     Indication: Atrial fibrillation
     Dates: start: 20250919

REACTIONS (1)
  - Weight decreased [Recovered/Resolved]

NARRATIVE: CASE EVENT DATE: 20251008
